FAERS Safety Report 9542380 (Version 1)
Quarter: 2013Q3

REPORT INFORMATION
  Report Type: Spontaneous
  Country: US (occurrence: US)
  Receive Date: 20130923
  Receipt Date: 20130923
  Transmission Date: 20140515
  Serious: No
  Sender: FDA-Public Use
  Company Number: US-BAYER-2013-114560

PATIENT
  Age: 58 Year
  Sex: Female
  Weight: 87 kg

DRUGS (6)
  1. ALEVE CAPLET [Suspect]
     Indication: BACK PAIN
     Dosage: 2 DF, PRN
     Route: 048
     Dates: start: 201308, end: 20130919
  2. VITAMIN D [COLECALCIFEROL] [Concomitant]
  3. XANAX [Concomitant]
  4. AMBIEN [Concomitant]
  5. VITAMIN C [ASCORBIC ACID] [Concomitant]
  6. ABILIFY [Concomitant]

REACTIONS (1)
  - Drug ineffective [None]
